FAERS Safety Report 10297918 (Version 2)
Quarter: 2014Q3

REPORT INFORMATION
  Report Type: Spontaneous
  Country: IT (occurrence: IT)
  Receive Date: 20140711
  Receipt Date: 20140930
  Transmission Date: 20150326
  Serious: Yes (Other)
  Sender: FDA-Public Use
  Company Number: IT-SA-2014SA088736

PATIENT
  Age: 61 Year
  Sex: Male

DRUGS (3)
  1. ALDACTONE [Suspect]
     Active Substance: SPIRONOLACTONE
     Indication: RENAL FAILURE ACUTE
     Route: 048
     Dates: start: 20130611, end: 20130624
  2. LANTUS [Concomitant]
     Active Substance: INSULIN GLARGINE
     Indication: DIABETES MELLITUS
     Dosage: DOSE:10 UNIT(S)
  3. LASIX [Suspect]
     Active Substance: FUROSEMIDE
     Indication: RENAL FAILURE ACUTE
     Route: 048
     Dates: start: 20130611, end: 20130624

REACTIONS (2)
  - Asthenia [Recovering/Resolving]
  - Gait disturbance [Recovering/Resolving]

NARRATIVE: CASE EVENT DATE: 20130624
